FAERS Safety Report 4538060-X (Version None)
Quarter: 2004Q4

REPORT INFORMATION
  Report Type: 
  Country: None (occurrence: None)
  Receive Date: 20041223
  Receipt Date: 20041203
  Transmission Date: 20050328
  Serious: Yes (Other)
  Sender: FDA-Public Use
  Company Number: 601618

PATIENT
  Age: 61 Year
  Sex: Male
  Weight: 80 kg

DRUGS (11)
  1. ADVATE (ANTIHEMOPHILIC FACTOR (RECOMBINANT), PLASMA/ ALBUMIN FREE METH [Suspect]
     Indication: KNEE OPERATION
     Dosage: 41000 IU; PRN; INTRAVENOUS
     Route: 042
     Dates: start: 20041028, end: 20041031
  2. PANTOPRAZOL [Concomitant]
  3. VOLTAREN [Concomitant]
  4. FERRUM H [Concomitant]
  5. VITAMIN B COMPLEX CAP [Concomitant]
  6. NEBILET [Concomitant]
  7. LEGALON [Concomitant]
  8. ALNA [Concomitant]
  9. FOLIC ACID [Concomitant]
  10. ANTISEPTICS ANDDISINFECTANTS [Concomitant]
  11. ALLOPURINOL [Concomitant]

REACTIONS (3)
  - CARDIOVASCULAR DISORDER [None]
  - FACE OEDEMA [None]
  - HYPERSENSITIVITY [None]
